FAERS Safety Report 15122435 (Version 1)
Quarter: 2018Q3

REPORT INFORMATION
  Report Type: Spontaneous
  Country: FR (occurrence: FR)
  Receive Date: 20180709
  Receipt Date: 20180709
  Transmission Date: 20181010
  Serious: Yes (Death, Hospitalization, Other)
  Sender: FDA-Public Use
  Company Number: FR-ABBVIE-18K-056-2412553-00

PATIENT
  Age: 42 Year
  Sex: Male
  Weight: 81 kg

DRUGS (2)
  1. HUMIRA [Suspect]
     Active Substance: ADALIMUMAB
     Indication: SPONDYLITIS
     Dosage: I DOSAGE FORM
     Route: 058
     Dates: start: 201104, end: 20110530
  2. REMICADE [Suspect]
     Active Substance: INFLIXIMAB
     Indication: SPONDYLITIS
     Route: 042
     Dates: start: 20120316, end: 20180403

REACTIONS (3)
  - Depression [Recovered/Resolved]
  - Completed suicide [Fatal]
  - Suicide attempt [Recovered/Resolved]

NARRATIVE: CASE EVENT DATE: 201105
